FAERS Safety Report 20785154 (Version 1)
Quarter: 2022Q2

REPORT INFORMATION
  Report Type: Spontaneous
  Country: US (occurrence: None)
  Receive Date: 20220504
  Receipt Date: 20220504
  Transmission Date: 20220720
  Serious: Yes (Death, Hospitalization)
  Sender: FDA-Public Use
  Company Number: None

PATIENT
  Age: 62 Year
  Sex: Male
  Weight: 109.2 kg

DRUGS (5)
  1. MERCAPTOPURINE [Suspect]
     Active Substance: MERCAPTOPURINE
     Dates: end: 20211213
  2. METHOTREXATE [Suspect]
     Active Substance: METHOTREXATE
     Dates: end: 20211207
  3. PREDNISONE [Suspect]
     Active Substance: PREDNISONE
     Dates: end: 20211010
  4. VINCRISTINE SULFATE [Suspect]
     Active Substance: VINCRISTINE SULFATE
     Dates: end: 20211006
  5. BLINATUMOMAB [Concomitant]
     Active Substance: BLINATUMOMAB

REACTIONS (10)
  - Fatigue [None]
  - Cough [None]
  - Dyspnoea [None]
  - Pyrexia [None]
  - COVID-19 [None]
  - Hypoxia [None]
  - COVID-19 pneumonia [None]
  - Pancytopenia [None]
  - Peripheral coldness [None]
  - Tachycardia [None]

NARRATIVE: CASE EVENT DATE: 20211224
